FAERS Safety Report 25389292 (Version 4)
Quarter: 2025Q3

REPORT INFORMATION
  Report Type: Report from Study
  Country: CN (occurrence: CN)
  Receive Date: 20250603
  Receipt Date: 20250822
  Transmission Date: 20251021
  Serious: Yes (Other)
  Sender: ROCHE
  Company Number: CN-ROCHE-3486454

PATIENT
  Age: 65 Year
  Sex: Female
  Weight: 55 kg

DRUGS (92)
  1. POLATUZUMAB VEDOTIN [Suspect]
     Active Substance: POLATUZUMAB VEDOTIN
     Indication: Diffuse large B-cell lymphoma
     Route: 042
     Dates: start: 20230608, end: 20230727
  2. POLATUZUMAB VEDOTIN [Suspect]
     Active Substance: POLATUZUMAB VEDOTIN
     Route: 042
     Dates: start: 20230609, end: 20230609
  3. POLATUZUMAB VEDOTIN [Suspect]
     Active Substance: POLATUZUMAB VEDOTIN
     Route: 042
     Dates: start: 20230915, end: 20231025
  4. POLATUZUMAB VEDOTIN [Suspect]
     Active Substance: POLATUZUMAB VEDOTIN
     Route: 042
     Dates: start: 20231026, end: 20231026
  5. POLATUZUMAB VEDOTIN [Suspect]
     Active Substance: POLATUZUMAB VEDOTIN
     Route: 042
     Dates: start: 20240122, end: 20240129
  6. POLATUZUMAB VEDOTIN [Suspect]
     Active Substance: POLATUZUMAB VEDOTIN
     Route: 042
     Dates: start: 20230707, end: 20230707
  7. POLATUZUMAB VEDOTIN [Suspect]
     Active Substance: POLATUZUMAB VEDOTIN
     Dosage: RECEIVED THREE COURSES, MOST RECENT DOSE OF POLATUZUMAB AT 90MG ONCE BY INTRAVENOUS DRIP WAS ON 26/O
     Route: 042
     Dates: start: 20230916, end: 20230916
  8. POLATUZUMAB VEDOTIN [Suspect]
     Active Substance: POLATUZUMAB VEDOTIN
     Route: 042
     Dates: start: 20230728, end: 20230728
  9. RITUXIMAB [Suspect]
     Active Substance: RITUXIMAB
     Indication: Diffuse large B-cell lymphoma
     Route: 042
     Dates: start: 20230608, end: 20230608
  10. RITUXIMAB [Suspect]
     Active Substance: RITUXIMAB
     Route: 042
     Dates: start: 20230706, end: 20230706
  11. RITUXIMAB [Suspect]
     Active Substance: RITUXIMAB
     Route: 042
     Dates: start: 20230727, end: 20230727
  12. RITUXIMAB [Suspect]
     Active Substance: RITUXIMAB
     Dosage: THREE COURSES
     Route: 042
     Dates: start: 20230915, end: 20230915
  13. RITUXIMAB [Suspect]
     Active Substance: RITUXIMAB
     Route: 042
     Dates: start: 20241025, end: 20241025
  14. LENALIDOMIDE [Suspect]
     Active Substance: LENALIDOMIDE
     Indication: Diffuse large B-cell lymphoma
     Dosage: DAY1-10
     Route: 048
     Dates: end: 20231103
  15. LENALIDOMIDE [Suspect]
     Active Substance: LENALIDOMIDE
     Dosage: DAY1-10
     Route: 048
     Dates: end: 20230916
  16. DOXORUBICIN HYDROCHLORIDE, LIPOSOMAL [Suspect]
     Active Substance: DOXORUBICIN HYDROCHLORIDE
     Indication: Diffuse large B-cell lymphoma
     Route: 042
     Dates: start: 20230608, end: 20230727
  17. DOXORUBICIN HYDROCHLORIDE, LIPOSOMAL [Suspect]
     Active Substance: DOXORUBICIN HYDROCHLORIDE
     Route: 042
     Dates: start: 20230609, end: 20230609
  18. DOXORUBICIN HYDROCHLORIDE, LIPOSOMAL [Suspect]
     Active Substance: DOXORUBICIN HYDROCHLORIDE
     Route: 065
     Dates: start: 20230915, end: 20231025
  19. DOXORUBICIN HYDROCHLORIDE, LIPOSOMAL [Suspect]
     Active Substance: DOXORUBICIN HYDROCHLORIDE
     Dosage: RECEIVED THREE COURSES
     Route: 042
     Dates: start: 20230707, end: 20230707
  20. DOXORUBICIN HYDROCHLORIDE, LIPOSOMAL [Suspect]
     Active Substance: DOXORUBICIN HYDROCHLORIDE
     Dosage: RECEIVED THREE COURSES
     Route: 042
     Dates: start: 20230917, end: 20230917
  21. DOXORUBICIN HYDROCHLORIDE, LIPOSOMAL [Suspect]
     Active Substance: DOXORUBICIN HYDROCHLORIDE
     Dosage: RECEIVED THREE COURSES
     Route: 042
     Dates: start: 20230728, end: 20230728
  22. CYCLOPHOSPHAMIDE [Suspect]
     Active Substance: CYCLOPHOSPHAMIDE
     Indication: Diffuse large B-cell lymphoma
     Route: 065
     Dates: start: 20230608, end: 20230727
  23. CYCLOPHOSPHAMIDE [Suspect]
     Active Substance: CYCLOPHOSPHAMIDE
     Route: 042
     Dates: start: 20230609, end: 20230609
  24. CYCLOPHOSPHAMIDE [Suspect]
     Active Substance: CYCLOPHOSPHAMIDE
     Route: 065
     Dates: start: 20230915, end: 20231025
  25. CYCLOPHOSPHAMIDE [Suspect]
     Active Substance: CYCLOPHOSPHAMIDE
     Route: 042
     Dates: start: 20231025, end: 20231025
  26. CYCLOPHOSPHAMIDE [Suspect]
     Active Substance: CYCLOPHOSPHAMIDE
     Route: 042
     Dates: start: 20230707, end: 20230707
  27. CYCLOPHOSPHAMIDE [Suspect]
     Active Substance: CYCLOPHOSPHAMIDE
     Route: 042
     Dates: start: 20230917, end: 20230917
  28. CYCLOPHOSPHAMIDE [Suspect]
     Active Substance: CYCLOPHOSPHAMIDE
     Route: 042
     Dates: start: 20230728, end: 20230728
  29. PREDNISONE ACETATE [Suspect]
     Active Substance: PREDNISONE ACETATE
     Indication: Diffuse large B-cell lymphoma
     Route: 065
  30. PREDNISONE [Suspect]
     Active Substance: PREDNISONE
     Indication: Diffuse large B-cell lymphoma
     Route: 048
     Dates: end: 20230711
  31. PREDNISONE [Suspect]
     Active Substance: PREDNISONE
     Route: 048
     Dates: start: 20230917, end: 20230921
  32. PREDNISONE [Suspect]
     Active Substance: PREDNISONE
     Route: 048
     Dates: start: 20230728, end: 20230801
  33. Haemocoagulase Agkistrodon [Concomitant]
     Route: 042
     Dates: start: 20240131, end: 20240223
  34. LEVETIRACETAM [Concomitant]
     Active Substance: LEVETIRACETAM
     Route: 048
     Dates: start: 20240222
  35. ENTECAVIR [Concomitant]
     Active Substance: ENTECAVIR
     Route: 048
     Dates: start: 20230608
  36. ENTECAVIR [Concomitant]
     Active Substance: ENTECAVIR
     Route: 048
     Dates: start: 20230917
  37. ENTECAVIR [Concomitant]
     Active Substance: ENTECAVIR
     Route: 048
     Dates: start: 20231025
  38. FIBRINOGEN HUMAN [Concomitant]
     Active Substance: FIBRINOGEN HUMAN
     Dates: start: 20240206, end: 20240223
  39. FIBRINOGEN HUMAN [Concomitant]
     Active Substance: FIBRINOGEN HUMAN
     Dates: start: 20240210
  40. OMEPRAZOLE SODIUM [Concomitant]
     Active Substance: OMEPRAZOLE SODIUM
     Route: 048
     Dates: start: 20230916
  41. OMEPRAZOLE SODIUM [Concomitant]
     Active Substance: OMEPRAZOLE SODIUM
     Route: 048
     Dates: start: 20240119, end: 20240201
  42. OMEPRAZOLE SODIUM [Concomitant]
     Active Substance: OMEPRAZOLE SODIUM
     Route: 048
     Dates: start: 20240131, end: 20240203
  43. OMEPRAZOLE SODIUM [Concomitant]
     Active Substance: OMEPRAZOLE SODIUM
     Route: 048
     Dates: start: 20231026
  44. HERBALS\DIAMMONIUM GLYCYRRHIZINATE [Concomitant]
     Active Substance: HERBALS\DIAMMONIUM GLYCYRRHIZINATE
     Route: 048
     Dates: start: 20230727
  45. HERBALS\DIAMMONIUM GLYCYRRHIZINATE [Concomitant]
     Active Substance: HERBALS\DIAMMONIUM GLYCYRRHIZINATE
     Route: 048
     Dates: start: 20231025
  46. VALACYCLOVIR HYDROCHLORIDE [Concomitant]
     Active Substance: VALACYCLOVIR HYDROCHLORIDE
     Route: 048
     Dates: start: 20231206
  47. SULFAMETHOXAZOLE [Concomitant]
     Active Substance: SULFAMETHOXAZOLE
     Route: 048
     Dates: start: 20240120
  48. CEFACLOR [Concomitant]
     Active Substance: CEFACLOR
     Route: 048
     Dates: start: 20240222
  49. MICYCLINE [Concomitant]
     Route: 048
     Dates: start: 20240222
  50. LEVOFLOXACIN [Concomitant]
     Active Substance: LEVOFLOXACIN
     Route: 042
     Dates: start: 20240119, end: 20240123
  51. PALONOSETRON HYDROCHLORIDE [Concomitant]
     Active Substance: PALONOSETRON HYDROCHLORIDE
     Route: 048
     Dates: start: 20240119, end: 20240119
  52. PALONOSETRON HYDROCHLORIDE [Concomitant]
     Active Substance: PALONOSETRON HYDROCHLORIDE
     Route: 048
     Dates: start: 20240131, end: 20240131
  53. PALONOSETRON HYDROCHLORIDE [Concomitant]
     Active Substance: PALONOSETRON HYDROCHLORIDE
     Route: 048
     Dates: start: 20231103, end: 20231103
  54. MAGNESIUM ISOGLYCYRRHIZINATE [Concomitant]
     Active Substance: MAGNESIUM ISOGLYCYRRHIZINATE
     Route: 042
     Dates: start: 20240119
  55. SODIUM BICARBONATE [Concomitant]
     Active Substance: SODIUM BICARBONATE
     Route: 042
     Dates: start: 20240120, end: 20240214
  56. COMPOUND CHLORHEXIDINE GARGLE [Concomitant]
     Dates: start: 20240120, end: 20240126
  57. COMPOUND CHLORHEXIDINE GARGLE [Concomitant]
     Dates: start: 20240214, end: 20240214
  58. MEROPENEM [Concomitant]
     Active Substance: MEROPENEM
     Route: 042
     Dates: start: 20240122, end: 20240129
  59. CASPOFUNGIN [Concomitant]
     Active Substance: CASPOFUNGIN
     Route: 042
     Dates: start: 20240122, end: 20240223
  60. HUMAN IMMUNOGLOBULIN G [Concomitant]
     Active Substance: HUMAN IMMUNOGLOBULIN G
     Route: 042
     Dates: start: 20240123, end: 20240129
  61. POTASSIUM CHLORIDE [Concomitant]
     Active Substance: POTASSIUM CHLORIDE
     Route: 048
     Dates: start: 20240126, end: 20240223
  62. GLUTATHIONE [Concomitant]
     Active Substance: GLUTATHIONE
     Route: 042
     Dates: start: 20240126, end: 20240201
  63. PEGYLATED RECOMBINANT HUMAN GRANULOCYTE COLONY STIMULATING FACTOR [Concomitant]
     Route: 058
     Dates: start: 20240128, end: 20240204
  64. PEGYLATED RECOMBINANT HUMAN GRANULOCYTE COLONY STIMULATING FACTOR [Concomitant]
     Route: 058
     Dates: start: 20240208, end: 20240209
  65. PEGYLATED RECOMBINANT HUMAN GRANULOCYTE COLONY STIMULATING FACTOR [Concomitant]
     Route: 058
     Dates: start: 20240214, end: 20240214
  66. IMIPENEM AND CILASTATIN SODIUM [Concomitant]
     Active Substance: CILASTATIN SODIUM\IMIPENEM
     Route: 042
     Dates: start: 20240129, end: 20240131
  67. CEFOPERAZONE SODIUM\SULBACTAM SODIUM [Concomitant]
     Active Substance: CEFOPERAZONE SODIUM\SULBACTAM SODIUM
     Dates: start: 20240131, end: 20240223
  68. RECOMBINANT HUMAN THROMBOPOIETIN [Concomitant]
     Active Substance: RECOMBINANT HUMAN THROMBOPOIETIN
     Route: 058
     Dates: start: 20240131, end: 20240213
  69. ETHAMSYLATE [Concomitant]
     Active Substance: ETHAMSYLATE
     Route: 042
     Dates: start: 20240131, end: 20240219
  70. METOCLOPRAMIDE HYDROCHLORIDE [Concomitant]
     Active Substance: METOCLOPRAMIDE HYDROCHLORIDE
     Route: 042
     Dates: start: 20240201, end: 20240208
  71. METOCLOPRAMIDE HYDROCHLORIDE [Concomitant]
     Active Substance: METOCLOPRAMIDE HYDROCHLORIDE
     Route: 042
     Dates: start: 20240213, end: 20240214
  72. VANCOMYCIN HYDROCHLORIDE [Concomitant]
     Active Substance: VANCOMYCIN HYDROCHLORIDE
     Dates: start: 20240131, end: 20240223
  73. MONTMORILLONITE [Concomitant]
     Active Substance: MONTMORILLONITE
     Route: 048
     Dates: start: 20240202, end: 20240204
  74. METHYLPREDNISOLONE SODIUM SUCCINATE [Concomitant]
     Active Substance: METHYLPREDNISOLONE SODIUM SUCCINATE
     Route: 042
     Dates: start: 20240202, end: 20240203
  75. AMLODIPINE BESYLATE [Concomitant]
     Active Substance: AMLODIPINE BESYLATE
     Route: 048
     Dates: start: 20240207, end: 20240223
  76. METOPROLOL SUCCINATE [Concomitant]
     Active Substance: METOPROLOL SUCCINATE
     Route: 048
     Dates: start: 20240209, end: 20240223
  77. RAFUTROMBOPAG OLAMINE [Concomitant]
     Active Substance: RAFUTROMBOPAG OLAMINE
     Route: 048
     Dates: start: 20240216, end: 20240223
  78. Carpofungin for injection [Concomitant]
     Route: 042
     Dates: start: 20240122, end: 20240223
  79. VITAMIN B6 [Concomitant]
     Active Substance: PYRIDOXINE HYDROCHLORIDE
     Indication: Diffuse large B-cell lymphoma
     Route: 048
     Dates: start: 20230608, end: 20230727
  80. VITAMIN B6 [Concomitant]
     Active Substance: PYRIDOXINE HYDROCHLORIDE
     Route: 048
     Dates: start: 20230609, end: 20230614
  81. VITAMIN B6 [Concomitant]
     Active Substance: PYRIDOXINE HYDROCHLORIDE
     Route: 065
     Dates: start: 20230915, end: 20231025
  82. VITAMIN B6 [Concomitant]
     Active Substance: PYRIDOXINE HYDROCHLORIDE
     Route: 042
     Dates: start: 20231025, end: 20231025
  83. PROMETHAZINE HYDROCHLORIDE [Concomitant]
     Active Substance: PROMETHAZINE HYDROCHLORIDE
  84. DEXAMETHASONE SODIUM PHOSPHATE [Concomitant]
     Active Substance: DEXAMETHASONE SODIUM PHOSPHATE
  85. LEUCOGEN [Concomitant]
     Active Substance: LEUCOGEN
  86. ACETYLCYSTEINE [Concomitant]
     Active Substance: ACETYLCYSTEINE
  87. CEFTAZIDIME [Concomitant]
     Active Substance: CEFTAZIDIME
  88. PROMETHAZINE [Concomitant]
     Active Substance: PROMETHAZINE HYDROCHLORIDE
  89. ACETAMINOPHEN [Concomitant]
     Active Substance: ACETAMINOPHEN
  90. Human Granulocyte Stimulating Factor [Concomitant]
  91. ACETAMINOPHEN [Concomitant]
     Active Substance: ACETAMINOPHEN
  92. LACTULOSE [Concomitant]
     Active Substance: LACTULOSE

REACTIONS (18)
  - Vomiting [Not Recovered/Not Resolved]
  - Mouth ulceration [Not Recovered/Not Resolved]
  - Lymphocyte count decreased [Recovered/Resolved]
  - Alanine aminotransferase increased [Recovered/Resolved]
  - Gamma-glutamyltransferase increased [Recovered/Resolved]
  - Anaemia [Not Recovered/Not Resolved]
  - Chest pain [Recovered/Resolved]
  - Productive cough [Recovered/Resolved]
  - Aspartate aminotransferase increased [Recovered/Resolved]
  - Hypoproteinaemia [Recovered/Resolved]
  - Cough [Recovered/Resolved]
  - White blood cell count decreased [Not Recovered/Not Resolved]
  - Neutrophil count decreased [Not Recovered/Not Resolved]
  - Leukocytosis [Recovered/Resolved]
  - Hepatic function abnormal [Recovered/Resolved]
  - Blood sodium decreased [Recovered/Resolved]
  - Neutropenia [Recovered/Resolved]
  - Gamma-glutamyltransferase increased [Recovered/Resolved]

NARRATIVE: CASE EVENT DATE: 20230618
